FAERS Safety Report 21604716 (Version 2)
Quarter: 2023Q1

REPORT INFORMATION
  Report Type: Report from Study
  Country: US (occurrence: US)
  Receive Date: 20221116
  Receipt Date: 20230117
  Transmission Date: 20230418
  Serious: No
  Sender: FDA-Public Use
  Company Number: US-ABBVIE-22K-163-4487188-00

PATIENT
  Sex: Female

DRUGS (2)
  1. RINVOQ [Suspect]
     Active Substance: UPADACITINIB
     Indication: Product used for unknown indication
     Route: 048
  2. RINVOQ [Suspect]
     Active Substance: UPADACITINIB
     Indication: Product used for unknown indication
     Route: 048

REACTIONS (12)
  - Headache [Unknown]
  - Fatigue [Unknown]
  - Weight decreased [Recovering/Resolving]
  - Viral infection [Unknown]
  - Unevaluable event [Unknown]
  - Feeling abnormal [Unknown]
  - Unevaluable event [Unknown]
  - Malaise [Unknown]
  - Insomnia [Unknown]
  - Vision blurred [Unknown]
  - Oropharyngeal pain [Unknown]
  - Cough [Unknown]
